FAERS Safety Report 17512064 (Version 2)
Quarter: 2020Q1

REPORT INFORMATION
  Report Type: Spontaneous
  Country: DE (occurrence: DE)
  Receive Date: 20200308
  Receipt Date: 20200312
  Transmission Date: 20200409
  Serious: Yes (Hospitalization)
  Sender: FDA-Public Use
  Company Number: NVSC2020DE062825

PATIENT
  Age: 65 Year
  Sex: Male

DRUGS (1)
  1. TERBINAFINE. [Suspect]
     Active Substance: TERBINAFINE
     Indication: ONYCHOMYCOSIS
     Dosage: UNK (1X/D) (2 WK)
     Route: 048

REACTIONS (3)
  - Renal function test abnormal [Unknown]
  - Liver function test increased [Unknown]
  - Toxic epidermal necrolysis [Recovering/Resolving]
